FAERS Safety Report 16392472 (Version 1)
Quarter: 2019Q2

REPORT INFORMATION
  Report Type: Spontaneous
  Country: US (occurrence: US)
  Receive Date: 20190605
  Receipt Date: 20190605
  Transmission Date: 20190711
  Serious: No
  Sender: FDA-Public Use
  Company Number: US-GLAXOSMITHKLINE-US2019099134

PATIENT
  Age: 40 Year
  Sex: Female

DRUGS (2)
  1. NICODERM CQ [Suspect]
     Active Substance: NICOTINE
     Indication: SMOKING CESSATION THERAPY
     Dosage: 21 MG, UNK
     Dates: start: 201903
  2. NICODERM CQ [Suspect]
     Active Substance: NICOTINE
     Dosage: 21, UNK
     Dates: start: 201903

REACTIONS (2)
  - Product complaint [Unknown]
  - Drug ineffective [Unknown]
